FAERS Safety Report 11253762 (Version 1)
Quarter: 2015Q3

REPORT INFORMATION
  Report Type: Spontaneous
  Country: US (occurrence: None)
  Receive Date: 20150708
  Receipt Date: 20150708
  Transmission Date: 20151125
  Serious: Yes (Other)
  Sender: FDA-Public Use
  Company Number: None

PATIENT
  Age: 12 Year
  Sex: Male
  Weight: 61 kg

DRUGS (1)
  1. TASIGNA [Suspect]
     Active Substance: NILOTINIB
     Indication: CHRONIC MYELOID LEUKAEMIA
     Dosage: OD
     Route: 048
     Dates: start: 20150429, end: 20150706

REACTIONS (4)
  - Pruritus [None]
  - Stereotypy [None]
  - Altered state of consciousness [None]
  - Memory impairment [None]

NARRATIVE: CASE EVENT DATE: 20150702
